FAERS Safety Report 5054062-1 (Version None)
Quarter: 2006Q3

REPORT INFORMATION
  Report Type: 
  Country: None (occurrence: None)
  Receive Date: 20060718
  Receipt Date: 20060320
  Transmission Date: 20061208
  Serious: Yes (Death)
  Sender: FDA-Public Use
  Company Number: US-BRISTOL-MYERS SQUIBB COMPANY-13320973

PATIENT
  Age: 21 Year
  Sex: Male

DRUGS (1)
  1. MEGACE [Suspect]
     Indication: ANOREXIA
     Route: 048
     Dates: start: 20051001

REACTIONS (2)
  - DEATH [None]
  - MALIGNANT NEOPLASM PROGRESSION [None]
